FAERS Safety Report 11794904 (Version 2)
Quarter: 2016Q1

REPORT INFORMATION
  Report Type: Spontaneous
  Country: US (occurrence: US)
  Receive Date: 20151202
  Receipt Date: 20160105
  Transmission Date: 20160525
  Serious: No
  Sender: FDA-Public Use
  Company Number: US-BAYER-2015-474683

PATIENT
  Sex: Female

DRUGS (1)
  1. MIRENA [Suspect]
     Active Substance: LEVONORGESTREL
     Indication: CONTRACEPTION
     Dosage: 20 MCG/24HR, CONT
     Route: 015
     Dates: start: 20151015, end: 20151015

REACTIONS (4)
  - Device deployment issue [None]
  - Abdominal discomfort [None]
  - Procedural pain [None]
  - Endometrial disorder [None]

NARRATIVE: CASE EVENT DATE: 20151015
